FAERS Safety Report 18152822 (Version 1)
Quarter: 2020Q3

REPORT INFORMATION
  Report Type: Spontaneous
  Country: US (occurrence: US)
  Receive Date: 20200814
  Receipt Date: 20200814
  Transmission Date: 20201103
  Serious: No
  Sender: FDA-Public Use
  Company Number: US-MANNKIND CORPORATION-2020MK000007

PATIENT
  Age: 71 Year
  Sex: Male

DRUGS (4)
  1. AFREZZA [Suspect]
     Active Substance: INSULIN HUMAN
     Dates: start: 20200121, end: 20200121
  2. HUMALOG [Concomitant]
     Active Substance: INSULIN LISPRO
     Indication: BLOOD GLUCOSE ABNORMAL
     Route: 065
  3. AFREZZA [Suspect]
     Active Substance: INSULIN HUMAN
     Indication: BLOOD GLUCOSE ABNORMAL
     Dates: start: 20200121
  4. TRESIBA [Concomitant]
     Active Substance: INSULIN DEGLUDEC
     Indication: BLOOD GLUCOSE ABNORMAL
     Dosage: 20?24 UNITS
     Route: 065

REACTIONS (3)
  - Therapeutic product effect decreased [Unknown]
  - Blood glucose decreased [Unknown]
  - Intentional product use issue [Unknown]

NARRATIVE: CASE EVENT DATE: 20200121
